FAERS Safety Report 9360649 (Version 1)
Quarter: 2013Q2

REPORT INFORMATION
  Report Type: Spontaneous
  Country: DK (occurrence: DK)
  Receive Date: 20130621
  Receipt Date: 20130621
  Transmission Date: 20140414
  Serious: Yes (Life-Threatening)
  Sender: FDA-Public Use
  Company Number: DK-JNJFOC-20130611255

PATIENT
  Age: 81 Year
  Sex: Male

DRUGS (8)
  1. XARELTO [Suspect]
     Indication: ANTICOAGULANT THERAPY
     Route: 048
     Dates: start: 20130503, end: 20130508
  2. ALFUZOSIN HYDROCHLORIDE [Concomitant]
     Indication: ADVERSE DRUG REACTION
     Route: 065
  3. PANTOPRAZOLE [Concomitant]
     Indication: ADVERSE DRUG REACTION
     Route: 065
  4. FURIX [Concomitant]
     Indication: ADVERSE DRUG REACTION
     Route: 065
  5. AMLODIPINE [Concomitant]
     Indication: HYPERTENSION
     Route: 065
  6. MANDOLGIN [Concomitant]
     Indication: ADVERSE DRUG REACTION
     Route: 065
  7. METOPROLOL SUCCINATE [Concomitant]
     Indication: ADVERSE DRUG REACTION
     Route: 065
  8. DIGOXIN [Concomitant]
     Indication: ADVERSE DRUG REACTION
     Route: 065

REACTIONS (1)
  - Renal impairment [Not Recovered/Not Resolved]
